FAERS Safety Report 13803342 (Version 1)
Quarter: 2017Q3

REPORT INFORMATION
  Report Type: Report from Study
  Country: US (occurrence: US)
  Receive Date: 20170728
  Receipt Date: 20170728
  Transmission Date: 20171127
  Serious: Yes (Hospitalization)
  Sender: FDA-Public Use
  Company Number: US-ROCHE-1969961

PATIENT
  Sex: Female

DRUGS (4)
  1. ZELBORAF [Suspect]
     Active Substance: VEMURAFENIB
     Indication: COLON CANCER METASTATIC
     Dosage: 340MGS 4 TABLETS TWICE A DAY ;ONGOING: NO
     Route: 048
     Dates: start: 2017, end: 20170706
  2. ZELBORAF [Suspect]
     Active Substance: VEMURAFENIB
     Indication: CHOLANGIOCARCINOMA
  3. ZELBORAF [Suspect]
     Active Substance: VEMURAFENIB
     Indication: COLON CANCER
  4. ZELBORAF [Suspect]
     Active Substance: VEMURAFENIB
     Indication: METASTASES TO LIVER

REACTIONS (5)
  - Haemoglobin decreased [Unknown]
  - Blood potassium decreased [Unknown]
  - Off label use [Unknown]
  - Fatigue [Unknown]
  - Intentional product use issue [Unknown]
